FAERS Safety Report 6910771-8 (Version None)
Quarter: 2010Q3

REPORT INFORMATION
  Report Type: 
  Country: None (occurrence: None)
  Receive Date: 20100716
  Receipt Date: 20091209
  Transmission Date: 20110219
  Serious: Yes (Other)
  Sender: FDA-Public Use
  Company Number: 2009291900

PATIENT

DRUGS (1)
  1. CELEBREX [Suspect]
     Dosage: ARTHRITIS (ARTHRITIS)

REACTIONS (1)
  - HYPERSENSITIVITY [None]
